FAERS Safety Report 14176540 (Version 1)
Quarter: 2017Q4

REPORT INFORMATION
  Report Type: Spontaneous
  Country: US (occurrence: US)
  Receive Date: 20171109
  Receipt Date: 20171109
  Transmission Date: 20180321
  Serious: Yes (Disabling, Other)
  Sender: FDA-Public Use
  Company Number: None

PATIENT
  Age: 29 Year
  Sex: Female
  Weight: 63 kg

DRUGS (1)
  1. ACLOMETASONE DIPRIPIONATE [Suspect]
     Active Substance: ALCLOMETASONE DIPROPIONATE
     Indication: ECZEMA

REACTIONS (16)
  - Lymphadenopathy [None]
  - Ear infection [None]
  - Skin exfoliation [None]
  - Impaired work ability [None]
  - Anxiety [None]
  - Staphylococcal infection [None]
  - Secretion discharge [None]
  - Emotional distress [None]
  - Insomnia [None]
  - Body temperature abnormal [None]
  - Vision blurred [None]
  - Pruritus [None]
  - Depression [None]
  - Burning sensation [None]
  - Erythema [None]
  - Social avoidant behaviour [None]

NARRATIVE: CASE EVENT DATE: 20150125
